FAERS Safety Report 20200560 (Version 2)
Quarter: 2021Q4

REPORT INFORMATION
  Report Type: Report from Study
  Country: CN (occurrence: None)
  Receive Date: 20211217
  Receipt Date: 20211220
  Transmission Date: 20220303
  Serious: Yes (Life-Threatening)
  Sender: FDA-Public Use
  Company Number: CN-ROCHE-2804881

PATIENT
  Age: 62 Year
  Sex: Male
  Weight: 60 kg

DRUGS (129)
  1. GLOFITAMAB [Suspect]
     Active Substance: GLOFITAMAB
     Indication: Diffuse large B-cell lymphoma refractory
     Dosage: MOST RECENT DOSE RECEIVED ON 02/APR/2021, 10 MG PRIOR TO EVENT ONSET.
     Route: 042
     Dates: start: 20210325
  2. OBINUTUZUMAB [Suspect]
     Active Substance: OBINUTUZUMAB
     Indication: Diffuse large B-cell lymphoma refractory
     Dosage: MOST RECENT DOSE RECEIVED ON 19/MAR/2021, 1000 MG PRIOR TO EVENT ONSET.
     Route: 042
     Dates: start: 20210319
  3. METHYLPREDNISOLONE [Concomitant]
     Active Substance: METHYLPREDNISOLONE
     Route: 042
     Dates: start: 20210402, end: 20210402
  4. METHYLPREDNISOLONE [Concomitant]
     Active Substance: METHYLPREDNISOLONE
     Route: 042
     Dates: start: 20210402, end: 20210402
  5. METHYLPREDNISOLONE [Concomitant]
     Active Substance: METHYLPREDNISOLONE
     Route: 042
     Dates: start: 20210325, end: 20210325
  6. METHYLPREDNISOLONE [Concomitant]
     Active Substance: METHYLPREDNISOLONE
     Route: 042
     Dates: start: 20210319, end: 20210319
  7. DIPHENHYDRAMINE [Concomitant]
     Active Substance: DIPHENHYDRAMINE
     Route: 030
     Dates: start: 20210402, end: 20210402
  8. INDOMETHACIN [Concomitant]
     Active Substance: INDOMETHACIN
     Indication: Pyrexia
     Route: 054
     Dates: start: 20210403, end: 20210403
  9. INDOMETHACIN [Concomitant]
     Active Substance: INDOMETHACIN
     Dosage: 0.3 OTHER
     Route: 054
     Dates: start: 20210403
  10. OXYGEN [Concomitant]
     Active Substance: OXYGEN
     Dosage: 3 L/ MIN
     Route: 055
     Dates: start: 20210328, end: 20210328
  11. DEXTRAN [Concomitant]
     Active Substance: DEXTRAN
     Dosage: 282.9 PG/ML
  12. OMEPRAZOLE [Concomitant]
     Active Substance: OMEPRAZOLE
     Route: 042
     Dates: start: 20210311, end: 20210315
  13. OMEPRAZOLE [Concomitant]
     Active Substance: OMEPRAZOLE
     Route: 042
     Dates: start: 20210322, end: 20210328
  14. OMEPRAZOLE [Concomitant]
     Active Substance: OMEPRAZOLE
     Route: 042
     Dates: start: 20210318, end: 20210320
  15. SODIUM POTASSIUM MAGNESIUM CALCIUM AND GLUCOSE [Concomitant]
     Route: 042
     Dates: start: 20210311, end: 20210315
  16. FAT EMULSION NOS [Concomitant]
     Active Substance: EGG PHOSPHOLIPIDS\SAFFLOWER OIL\SOYBEAN OIL
     Route: 042
     Dates: start: 20210311, end: 20210315
  17. FAT EMULSION NOS [Concomitant]
     Active Substance: EGG PHOSPHOLIPIDS\SAFFLOWER OIL\SOYBEAN OIL
     Route: 042
     Dates: start: 20210322, end: 20210328
  18. FAT EMULSION NOS [Concomitant]
     Active Substance: EGG PHOSPHOLIPIDS\SAFFLOWER OIL\SOYBEAN OIL
     Route: 042
     Dates: start: 20210318, end: 20210318
  19. FAT EMULSION NOS [Concomitant]
     Active Substance: EGG PHOSPHOLIPIDS\SAFFLOWER OIL\SOYBEAN OIL
     Route: 042
     Dates: start: 20210320, end: 20210321
  20. FAT EMULSION NOS [Concomitant]
     Active Substance: EGG PHOSPHOLIPIDS\SAFFLOWER OIL\SOYBEAN OIL
     Route: 042
     Dates: start: 20210329, end: 20210402
  21. FAT EMULSION NOS [Concomitant]
     Active Substance: EGG PHOSPHOLIPIDS\SAFFLOWER OIL\SOYBEAN OIL
     Route: 042
     Dates: start: 20210403, end: 20210403
  22. GLYCERIN [Concomitant]
     Active Substance: GLYCERIN
     Route: 054
     Dates: start: 20210311, end: 20210311
  23. FENTANYL [Concomitant]
     Active Substance: FENTANYL
     Indication: Analgesic therapy
     Route: 062
     Dates: start: 20210312, end: 20210312
  24. FENTANYL [Concomitant]
     Active Substance: FENTANYL
     Route: 062
     Dates: start: 20210313, end: 20210313
  25. FENTANYL [Concomitant]
     Active Substance: FENTANYL
     Route: 062
     Dates: start: 20210322, end: 20210322
  26. HEMOCOAGULASE BOTHROPS ATROX [Concomitant]
     Dosage: DOSE: 1 U
     Route: 042
     Dates: start: 20210313, end: 20210314
  27. HEMOCOAGULASE BOTHROPS ATROX [Concomitant]
     Dosage: 1 U
     Route: 042
     Dates: start: 20210322, end: 20210328
  28. DIPHENHYDRAMINE HYDROCHLORIDE [Concomitant]
     Active Substance: DIPHENHYDRAMINE HYDROCHLORIDE
     Route: 030
     Dates: start: 20210325, end: 20210325
  29. DIPHENHYDRAMINE HYDROCHLORIDE [Concomitant]
     Active Substance: DIPHENHYDRAMINE HYDROCHLORIDE
     Route: 030
     Dates: start: 20210319, end: 20210319
  30. DIPHENHYDRAMINE HYDROCHLORIDE [Concomitant]
     Active Substance: DIPHENHYDRAMINE HYDROCHLORIDE
     Route: 030
     Dates: start: 20210326, end: 20210326
  31. DIPHENHYDRAMINE HYDROCHLORIDE [Concomitant]
     Active Substance: DIPHENHYDRAMINE HYDROCHLORIDE
     Route: 030
     Dates: start: 20210327, end: 20210327
  32. DIPHENHYDRAMINE HYDROCHLORIDE [Concomitant]
     Active Substance: DIPHENHYDRAMINE HYDROCHLORIDE
     Route: 030
     Dates: start: 20210328, end: 20210328
  33. DIPHENHYDRAMINE HYDROCHLORIDE [Concomitant]
     Active Substance: DIPHENHYDRAMINE HYDROCHLORIDE
     Route: 030
     Dates: start: 20210329, end: 20210401
  34. DIPHENHYDRAMINE HYDROCHLORIDE [Concomitant]
     Active Substance: DIPHENHYDRAMINE HYDROCHLORIDE
     Route: 030
     Dates: start: 20210402, end: 20210403
  35. ACETAMINOPHEN [Concomitant]
     Active Substance: ACETAMINOPHEN
     Route: 048
     Dates: start: 20210325, end: 20210325
  36. ACETAMINOPHEN [Concomitant]
     Active Substance: ACETAMINOPHEN
     Route: 048
     Dates: start: 20210319, end: 20210319
  37. ALLOPURINOL [Concomitant]
     Active Substance: ALLOPURINOL
     Route: 048
     Dates: start: 20210320, end: 20210329
  38. MONTMORILLONITE [Concomitant]
     Active Substance: MONTMORILLONITE
     Route: 048
     Dates: start: 20210322, end: 20210324
  39. LOPERAMIDE HYDROCHLORIDE [Concomitant]
     Active Substance: LOPERAMIDE HYDROCHLORIDE
     Route: 048
     Dates: start: 20210322, end: 20210323
  40. SPIRONOLACTONE [Concomitant]
     Active Substance: SPIRONOLACTONE
     Indication: Polyuria
     Route: 048
     Dates: start: 20210323, end: 20210329
  41. HYDROCHLOROTHIAZIDE [Concomitant]
     Active Substance: HYDROCHLOROTHIAZIDE
     Indication: Polyuria
     Route: 048
     Dates: start: 20210323, end: 20210329
  42. SODIUM LACTATE RINGER^S [Concomitant]
     Route: 042
     Dates: start: 20210318, end: 20210321
  43. SODIUM LACTATE RINGER^S [Concomitant]
     Route: 042
     Dates: start: 20210326, end: 20210326
  44. SODIUM LACTATE RINGER^S [Concomitant]
     Route: 042
     Dates: start: 20210327, end: 20210328
  45. SODIUM LACTATE RINGER^S [Concomitant]
     Route: 042
     Dates: start: 20210330, end: 20210401
  46. SODIUM LACTATE RINGER^S [Concomitant]
     Route: 042
     Dates: start: 20210331, end: 20210401
  47. SODIUM LACTATE RINGER^S [Concomitant]
     Route: 042
     Dates: start: 20210403, end: 20210404
  48. SODIUM BICARBONATE [Concomitant]
     Active Substance: SODIUM BICARBONATE
     Route: 042
     Dates: start: 20210318, end: 20210319
  49. SODIUM BICARBONATE [Concomitant]
     Active Substance: SODIUM BICARBONATE
     Route: 042
     Dates: start: 20210320, end: 20210320
  50. SODIUM BICARBONATE [Concomitant]
     Active Substance: SODIUM BICARBONATE
     Route: 042
     Dates: start: 20210321, end: 20210321
  51. SODIUM BICARBONATE [Concomitant]
     Active Substance: SODIUM BICARBONATE
     Route: 042
     Dates: start: 20210326, end: 20210328
  52. SODIUM POTASSIUM MAGNESIUM CALCIUM AND GLUCOSE [Concomitant]
     Route: 042
     Dates: start: 20210318, end: 20210318
  53. FENTANYL TRANSDERMAL SYSTEM [Concomitant]
     Active Substance: FENTANYL
     Indication: Analgesic therapy
     Route: 062
     Dates: start: 20210318, end: 20210318
  54. FENTANYL TRANSDERMAL SYSTEM [Concomitant]
     Active Substance: FENTANYL
     Dosage: 1 OTHER
     Route: 062
     Dates: start: 20210324, end: 20210324
  55. FENTANYL TRANSDERMAL SYSTEM [Concomitant]
     Active Substance: FENTANYL
     Route: 062
     Dates: start: 20210330, end: 20210330
  56. FENTANYL TRANSDERMAL SYSTEM [Concomitant]
     Active Substance: FENTANYL
     Route: 062
     Dates: start: 20210322, end: 20210322
  57. FUROSEMIDE [Concomitant]
     Active Substance: FUROSEMIDE
     Indication: Polyuria
     Route: 042
     Dates: start: 20210320, end: 20210320
  58. FUROSEMIDE [Concomitant]
     Active Substance: FUROSEMIDE
     Route: 042
     Dates: start: 20210323, end: 20210323
  59. FUROSEMIDE [Concomitant]
     Active Substance: FUROSEMIDE
     Route: 042
     Dates: start: 20210324, end: 20210324
  60. FUROSEMIDE [Concomitant]
     Active Substance: FUROSEMIDE
     Route: 042
     Dates: start: 20210326, end: 20210327
  61. FUROSEMIDE [Concomitant]
     Active Substance: FUROSEMIDE
     Route: 042
     Dates: start: 20210329, end: 20210401
  62. FUROSEMIDE [Concomitant]
     Active Substance: FUROSEMIDE
     Route: 042
     Dates: start: 20210403, end: 20210403
  63. FUROSEMIDE [Concomitant]
     Active Substance: FUROSEMIDE
     Route: 042
     Dates: start: 20210404, end: 20210404
  64. FUROSEMIDE [Concomitant]
     Active Substance: FUROSEMIDE
     Route: 042
     Dates: start: 20210404, end: 20210404
  65. COMPOUND AMINOPHENAZONE AND BARBITAL [Concomitant]
     Indication: Premedication
     Route: 030
     Dates: start: 20210402, end: 20210402
  66. COMPOUND AMINOPHENAZONE AND BARBITAL [Concomitant]
     Route: 030
     Dates: start: 20210326, end: 20210327
  67. COMPOUND AMINOPHENAZONE AND BARBITAL [Concomitant]
     Route: 030
     Dates: start: 20210401, end: 20210401
  68. COMPOUND AMINOPHENAZONE AND BARBITAL [Concomitant]
     Route: 030
     Dates: start: 20210402, end: 20210402
  69. LIDOCAINE HYDROCHLORIDE [Concomitant]
     Active Substance: LIDOCAINE HYDROCHLORIDE
     Indication: Local anaesthesia
     Route: 058
     Dates: start: 20210322, end: 20210322
  70. SODIUM CHLORIDE [Concomitant]
     Active Substance: SODIUM CHLORIDE
     Route: 042
     Dates: start: 20210322, end: 20210322
  71. SODIUM CHLORIDE [Concomitant]
     Active Substance: SODIUM CHLORIDE
     Route: 042
     Dates: start: 20210322, end: 20210322
  72. SODIUM CHLORIDE [Concomitant]
     Active Substance: SODIUM CHLORIDE
     Route: 042
     Dates: start: 20210325, end: 20210325
  73. SODIUM CHLORIDE [Concomitant]
     Active Substance: SODIUM CHLORIDE
     Route: 042
     Dates: start: 20210325, end: 20210325
  74. SODIUM CHLORIDE [Concomitant]
     Active Substance: SODIUM CHLORIDE
     Route: 042
     Dates: start: 20210326, end: 20210328
  75. HYDROCORTISONE SODIUM SUCCINATE [Concomitant]
     Active Substance: HYDROCORTISONE SODIUM SUCCINATE
     Route: 042
     Dates: start: 20210322, end: 20210324
  76. ALBUMIN HUMAN [Concomitant]
     Active Substance: ALBUMIN HUMAN
     Route: 042
     Dates: start: 20210322, end: 20210324
  77. ALBUMIN HUMAN [Concomitant]
     Active Substance: ALBUMIN HUMAN
     Route: 042
     Dates: start: 20210326, end: 20210327
  78. ALBUMIN HUMAN [Concomitant]
     Active Substance: ALBUMIN HUMAN
     Route: 042
     Dates: start: 20210329, end: 20210401
  79. ALBUMIN HUMAN [Concomitant]
     Active Substance: ALBUMIN HUMAN
     Route: 042
     Dates: start: 20210331, end: 20210401
  80. ALBUMIN HUMAN [Concomitant]
     Active Substance: ALBUMIN HUMAN
     Route: 042
     Dates: start: 20210403, end: 20210403
  81. POTASSIUM CHLORIDE [Concomitant]
     Active Substance: POTASSIUM CHLORIDE
     Route: 042
     Dates: start: 20210322, end: 20210324
  82. POTASSIUM CHLORIDE [Concomitant]
     Active Substance: POTASSIUM CHLORIDE
     Route: 042
     Dates: start: 20210324, end: 20210324
  83. POTASSIUM CHLORIDE [Concomitant]
     Active Substance: POTASSIUM CHLORIDE
     Route: 042
     Dates: start: 20210325, end: 20210325
  84. POTASSIUM CHLORIDE [Concomitant]
     Active Substance: POTASSIUM CHLORIDE
     Route: 042
     Dates: start: 20210326, end: 20210326
  85. POTASSIUM CHLORIDE [Concomitant]
     Active Substance: POTASSIUM CHLORIDE
     Route: 042
     Dates: start: 20210326, end: 20210326
  86. POTASSIUM CHLORIDE [Concomitant]
     Active Substance: POTASSIUM CHLORIDE
     Route: 042
     Dates: start: 20210327, end: 20210328
  87. POTASSIUM CHLORIDE [Concomitant]
     Active Substance: POTASSIUM CHLORIDE
     Route: 042
     Dates: start: 20210328, end: 20210328
  88. POTASSIUM CHLORIDE [Concomitant]
     Active Substance: POTASSIUM CHLORIDE
     Route: 042
     Dates: start: 20210329, end: 20210402
  89. POTASSIUM CHLORIDE [Concomitant]
     Active Substance: POTASSIUM CHLORIDE
     Route: 042
     Dates: start: 20210331, end: 20210331
  90. POTASSIUM CHLORIDE [Concomitant]
     Active Substance: POTASSIUM CHLORIDE
     Route: 042
     Dates: start: 20210401, end: 20210401
  91. POTASSIUM CHLORIDE [Concomitant]
     Active Substance: POTASSIUM CHLORIDE
     Route: 042
     Dates: start: 20210329, end: 20210329
  92. CALCIUM GLUCONATE [Concomitant]
     Active Substance: CALCIUM GLUCONATE
     Route: 042
     Dates: start: 20210322, end: 20210322
  93. CALCIUM GLUCONATE [Concomitant]
     Active Substance: CALCIUM GLUCONATE
     Route: 042
     Dates: start: 20210324, end: 20210324
  94. CALCIUM GLUCONATE [Concomitant]
     Active Substance: CALCIUM GLUCONATE
     Route: 042
     Dates: start: 20210326, end: 20210326
  95. SODIUM CHLORIDE [Concomitant]
     Active Substance: SODIUM CHLORIDE
     Route: 042
     Dates: start: 20210322, end: 20210322
  96. POTASSIUM CHLORIDE [Concomitant]
     Active Substance: POTASSIUM CHLORIDE
     Route: 042
     Dates: start: 20210322, end: 20210322
  97. POTASSIUM CHLORIDE [Concomitant]
     Active Substance: POTASSIUM CHLORIDE
     Route: 042
     Dates: start: 20210403, end: 20210404
  98. BUCINNAZINE HYDROCHLORIDE [Concomitant]
     Route: 030
     Dates: start: 20210324, end: 20210325
  99. BUCINNAZINE HYDROCHLORIDE [Concomitant]
     Route: 030
     Dates: start: 20210329, end: 20210329
  100. MAGNESIUM ISOGLYCYRRHIZINATE [Concomitant]
     Active Substance: MAGNESIUM ISOGLYCYRRHIZINATE
     Route: 042
     Dates: start: 20210326, end: 20210327
  101. MAGNESIUM ISOGLYCYRRHIZINATE [Concomitant]
     Active Substance: MAGNESIUM ISOGLYCYRRHIZINATE
     Route: 042
     Dates: start: 20210329, end: 20210402
  102. MAGNESIUM ISOGLYCYRRHIZINATE [Concomitant]
     Active Substance: MAGNESIUM ISOGLYCYRRHIZINATE
     Route: 042
     Dates: start: 20210403, end: 20210404
  103. METOCLOPRAMIDE DIHYDROCHLORIDE [Concomitant]
     Route: 030
     Dates: start: 20210327, end: 20210328
  104. OMEPRAZOLE [Concomitant]
     Active Substance: OMEPRAZOLE
     Route: 042
     Dates: start: 20210329, end: 20210402
  105. OMEPRAZOLE [Concomitant]
     Active Substance: OMEPRAZOLE
     Route: 042
     Dates: start: 20210403, end: 20210404
  106. THROMBOPOIETIN [Concomitant]
     Active Substance: THROMBOPOIETIN
     Dosage: 15000 U
     Route: 055
     Dates: start: 20210329, end: 20210330
  107. METHYLPREDNISOLONE SODIUM SUCCINATE [Concomitant]
     Active Substance: METHYLPREDNISOLONE SODIUM SUCCINATE
     Route: 042
     Dates: start: 20210402, end: 20210402
  108. METHYLPREDNISOLONE SODIUM SUCCINATE [Concomitant]
     Active Substance: METHYLPREDNISOLONE SODIUM SUCCINATE
     Route: 042
     Dates: start: 20210404, end: 20210404
  109. DYPHYLLINE [Concomitant]
     Active Substance: DYPHYLLINE
     Route: 042
     Dates: start: 20210404, end: 20210404
  110. METHYLPREDNISOLONE SODIUM SUCCINATE [Concomitant]
     Active Substance: METHYLPREDNISOLONE SODIUM SUCCINATE
     Route: 042
     Dates: start: 20210404, end: 20210404
  111. METHYLPREDNISOLONE SODIUM SUCCINATE [Concomitant]
     Active Substance: METHYLPREDNISOLONE SODIUM SUCCINATE
     Route: 042
     Dates: start: 20210404, end: 20210404
  112. DESLANOSIDE [Concomitant]
     Active Substance: DESLANOSIDE
     Route: 042
     Dates: start: 20210404, end: 20210404
  113. DEXAMETHASONE SODIUM PHOSPHATE [Concomitant]
     Active Substance: DEXAMETHASONE SODIUM PHOSPHATE
     Route: 042
     Dates: start: 20210404, end: 20210404
  114. MORPHINE HYDROCHLORIDE [Concomitant]
     Active Substance: MORPHINE HYDROCHLORIDE
     Route: 055
     Dates: start: 20210326, end: 20210328
  115. MORPHINE HYDROCHLORIDE [Concomitant]
     Active Substance: MORPHINE HYDROCHLORIDE
     Route: 055
     Dates: start: 20210329, end: 20210329
  116. MORPHINE HYDROCHLORIDE [Concomitant]
     Active Substance: MORPHINE HYDROCHLORIDE
     Route: 055
     Dates: start: 20210330, end: 20210330
  117. MORPHINE HYDROCHLORIDE [Concomitant]
     Active Substance: MORPHINE HYDROCHLORIDE
     Route: 055
     Dates: start: 20210331, end: 20210401
  118. MORPHINE HYDROCHLORIDE [Concomitant]
     Active Substance: MORPHINE HYDROCHLORIDE
     Route: 055
     Dates: start: 20210326, end: 20210328
  119. MORPHINE HYDROCHLORIDE [Concomitant]
     Active Substance: MORPHINE HYDROCHLORIDE
     Route: 055
     Dates: start: 20210329, end: 20210329
  120. MORPHINE HYDROCHLORIDE [Concomitant]
     Active Substance: MORPHINE HYDROCHLORIDE
     Route: 055
     Dates: start: 20210401, end: 20210401
  121. MORPHINE HYDROCHLORIDE [Concomitant]
     Active Substance: MORPHINE HYDROCHLORIDE
     Route: 055
     Dates: start: 20210402, end: 20210402
  122. GLYCERIN [Concomitant]
     Active Substance: GLYCERIN
     Route: 054
     Dates: start: 20210311, end: 20210311
  123. POTASSIUM CHLORIDE [Concomitant]
     Active Substance: POTASSIUM CHLORIDE
     Route: 042
     Dates: start: 20210330, end: 20210330
  124. POTASSIUM CHLORIDE [Concomitant]
     Active Substance: POTASSIUM CHLORIDE
     Route: 042
     Dates: start: 20210401, end: 20210401
  125. DEXTROSE\SODIUM CHLORIDE [Concomitant]
     Active Substance: DEXTROSE\SODIUM CHLORIDE
     Route: 042
     Dates: start: 20210403, end: 20210404
  126. DEXTROSE\SODIUM CHLORIDE [Concomitant]
     Active Substance: DEXTROSE\SODIUM CHLORIDE
     Route: 042
     Dates: start: 20210320, end: 20210321
  127. PHOSPHOLIPID [Concomitant]
     Active Substance: PHOSPHOLIPID
  128. PLATELETS [Concomitant]
     Active Substance: HUMAN PLATELET, ALLOGENIC
     Indication: Platelet count increased
     Dates: start: 20210401, end: 20210401
  129. BICYCLOL [Concomitant]
     Active Substance: BICYCLOL
     Route: 048
     Dates: start: 20210322

REACTIONS (1)
  - Cardiopulmonary failure [Not Recovered/Not Resolved]

NARRATIVE: CASE EVENT DATE: 20210404
